FAERS Safety Report 25583314 (Version 1)
Quarter: 2025Q3

REPORT INFORMATION
  Report Type: Spontaneous
  Country: US (occurrence: US)
  Receive Date: 20250721
  Receipt Date: 20250721
  Transmission Date: 20251021
  Serious: Yes (Hospitalization)
  Sender: CHEPLAPHARM
  Company Number: US-CHEPLA-2025008722

PATIENT
  Age: 76 Year
  Sex: Female

DRUGS (19)
  1. GANCICLOVIR [Suspect]
     Active Substance: GANCICLOVIR
     Indication: Human herpesvirus 6 infection
     Dosage: RENALLY DOSED?DAILY DOSE: 1.25 MILLIGRAM/KG
     Route: 042
  2. BENDAMUSTINE [Concomitant]
     Active Substance: BENDAMUSTINE
     Indication: Follicular lymphoma
     Dates: start: 202212, end: 202302
  3. BENDAMUSTINE [Concomitant]
     Active Substance: BENDAMUSTINE
     Indication: Follicular lymphoma
  4. RITUXIMAB [Concomitant]
     Active Substance: RITUXIMAB
     Indication: Follicular lymphoma
     Dates: start: 202005
  5. RITUXIMAB [Concomitant]
     Active Substance: RITUXIMAB
     Indication: Follicular lymphoma
     Dates: start: 202212, end: 202302
  6. RITUXIMAB [Concomitant]
     Active Substance: RITUXIMAB
     Indication: Follicular lymphoma
     Dates: end: 201711
  7. RITUXIMAB [Concomitant]
     Active Substance: RITUXIMAB
     Indication: Follicular lymphoma
  8. CYCLOPHOSPHAMIDE [Concomitant]
     Active Substance: CYCLOPHOSPHAMIDE
     Indication: Follicular lymphoma
     Dates: start: 202005
  9. ETOPOSIDE [Concomitant]
     Active Substance: ETOPOSIDE
     Indication: Follicular lymphoma
     Dates: start: 202005
  10. VINCRISTINE [Concomitant]
     Active Substance: VINCRISTINE
     Indication: Follicular lymphoma
     Dates: start: 202005
  11. PREDNISONE [Concomitant]
     Active Substance: PREDNISONE
     Indication: Follicular lymphoma
     Dates: start: 202005
  12. MOSUNETUZUMAB [Concomitant]
     Active Substance: MOSUNETUZUMAB
     Indication: Follicular lymphoma
     Route: 042
     Dates: start: 202411
  13. MOSUNETUZUMAB [Concomitant]
     Active Substance: MOSUNETUZUMAB
     Indication: Follicular lymphoma
     Route: 042
  14. MOSUNETUZUMAB [Concomitant]
     Active Substance: MOSUNETUZUMAB
     Indication: Follicular lymphoma
     Route: 042
  15. MOSUNETUZUMAB [Concomitant]
     Active Substance: MOSUNETUZUMAB
     Indication: Follicular lymphoma
     Route: 042
  16. MOSUNETUZUMAB [Concomitant]
     Active Substance: MOSUNETUZUMAB
     Indication: Follicular lymphoma
     Route: 042
  17. THIAMINE [Concomitant]
     Active Substance: THIAMINE
     Indication: Wernicke^s encephalopathy
     Route: 042
  18. DEXAMETHASONE [Concomitant]
     Active Substance: DEXAMETHASONE
     Indication: Immune effector cell-associated neurotoxicity syndrome
     Dosage: DAILY DOSE: 10 MILLIGRAM
     Route: 042
  19. ACYCLOVIR [Concomitant]
     Active Substance: ACYCLOVIR
     Indication: Immune effector cell-associated neurotoxicity syndrome
     Route: 042

REACTIONS (2)
  - Pulseless electrical activity [Not Recovered/Not Resolved]
  - Off label use [Unknown]
